FAERS Safety Report 10141847 (Version 2)
Quarter: 2014Q2

REPORT INFORMATION
  Report Type: Report from Study
  Country: BE (occurrence: BE)
  Receive Date: 20140429
  Receipt Date: 20140513
  Transmission Date: 20141212
  Serious: Yes (Other)
  Sender: FDA-Public Use
  Company Number: PHHY2014BE051602

PATIENT
  Age: 62 Year
  Sex: Female
  Weight: 42 kg

DRUGS (3)
  1. GILENYA [Suspect]
     Indication: MULTIPLE SCLEROSIS
     Dosage: 0.5 MG, QD
     Route: 048
     Dates: start: 20130220, end: 201312
  2. GILENYA [Suspect]
     Dosage: 0.5 MG, QOD
     Route: 048
     Dates: start: 201312, end: 201401
  3. GILENYA [Suspect]
     Dosage: 0.5 MG, QW3
     Route: 048
     Dates: start: 201401

REACTIONS (3)
  - Pneumonia respiratory syncytial viral [Not Recovered/Not Resolved]
  - Lymphocyte count decreased [Recovering/Resolving]
  - Prescribed underdose [Unknown]
